FAERS Safety Report 7320407-2 (Version None)
Quarter: 2011Q1

REPORT INFORMATION
  Report Type: 
  Country: None (occurrence: None)
  Receive Date: 20110228
  Receipt Date: 20110218
  Transmission Date: 20110831
  Serious: Yes (Other)
  Sender: FDA-Public Use
  Company Number: A0897686A

PATIENT
  Sex: Female
  Weight: 82.7 kg

DRUGS (2)
  1. AVANDAMET [Suspect]
     Route: 048
  2. AVANDIA [Suspect]
     Dosage: 4MG TWICE PER DAY
     Route: 048

REACTIONS (1)
  - MYOCARDIAL INFARCTION [None]
